FAERS Safety Report 8769734 (Version 2)
Quarter: 2013Q1

REPORT INFORMATION
  Report Type: Spontaneous
  Country: US (occurrence: US)
  Receive Date: 20120905
  Receipt Date: 20130119
  Transmission Date: 20140127
  Serious: No
  Sender: FDA-Public Use
  Company Number: US-009507513-1208USA011434

PATIENT
  Age: 20 Year
  Sex: Female
  Weight: 68.27 kg

DRUGS (1)
  1. IMPLANON [Suspect]
     Indication: CONTRACEPTION
     Dosage: UNK, EVERY THREE YEARS
     Route: 059
     Dates: start: 20111031

REACTIONS (3)
  - Unintended pregnancy [Unknown]
  - Decreased appetite [Unknown]
  - Abdominal pain upper [Unknown]
